FAERS Safety Report 4373165-8 (Version None)
Quarter: 2004Q2

REPORT INFORMATION
  Report Type: 
  Country: None (occurrence: None)
  Receive Date: 20040603
  Receipt Date: 20040520
  Transmission Date: 20050107
  Serious: Yes (Death, Hospitalization)
  Sender: FDA-Public Use
  Company Number: 2004-0007086

PATIENT
  Age: 50 Year
  Sex: Male
  Weight: 45.7 kg

DRUGS (6)
  1. TENOFOVIR DISOPROXIL FUMARATE / EMTRICITABINE [Suspect]
     Indication: HIV INFECTION
     Dosage: 300 MG, 1 IN 1 D, ORAL
     Route: 048
     Dates: start: 20030623, end: 20040518
  2. DDI (DIDANOSINE) [Concomitant]
  3. SUSTIVA [Concomitant]
  4. SEPTRA [Concomitant]
  5. ACYCLOVIR [Concomitant]
  6. ELAVIL [Concomitant]

REACTIONS (13)
  - CARDIAC ARREST [None]
  - DEHYDRATION [None]
  - DIZZINESS [None]
  - DYSPNOEA [None]
  - FATIGUE [None]
  - FEELING ABNORMAL [None]
  - GENERAL PHYSICAL HEALTH DETERIORATION [None]
  - HYPOTENSION [None]
  - METABOLIC ACIDOSIS [None]
  - NOCTURIA [None]
  - RENAL FAILURE ACUTE [None]
  - TACHYCARDIA [None]
  - URINE OUTPUT INCREASED [None]
